FAERS Safety Report 4788273-7 (Version None)
Quarter: 2005Q4

REPORT INFORMATION
  Report Type: 
  Country: None (occurrence: None)
  Receive Date: 20051004
  Receipt Date: 20051004
  Transmission Date: 20060501
  Serious: Yes (Other)
  Sender: FDA-Public Use
  Company Number: None

PATIENT
  Age: 74 Year
  Sex: Female
  Weight: 98.8842 kg

DRUGS (8)
  1. ZOCOR [Suspect]
     Indication: HYPERCHOLESTEROLAEMIA
     Dosage: 20 MG PO QHS
     Route: 048
     Dates: start: 20050621, end: 20050704
  2. PLAVIX [Concomitant]
  3. NPH INSULIN [Concomitant]
  4. REGULAR INSULIN [Concomitant]
  5. DARVOCET [Concomitant]
  6. ZESTRIL [Concomitant]
  7. FUROSEMIDE [Concomitant]
  8. ALBUTEROL [Concomitant]

REACTIONS (6)
  - ASTHENIA [None]
  - DIZZINESS [None]
  - FATIGUE [None]
  - MYALGIA [None]
  - NAUSEA [None]
  - PARAESTHESIA [None]
